FAERS Safety Report 24932772 (Version 1)
Quarter: 2025Q1

REPORT INFORMATION
  Report Type: Report from Study
  Country: US (occurrence: US)
  Receive Date: 20250205
  Receipt Date: 20250205
  Transmission Date: 20250409
  Serious: No
  Sender: EXELIXIS
  Company Number: US-EXELIXIS-EXL-2024-000783

PATIENT
  Sex: Male

DRUGS (3)
  1. CABOMETYX [Suspect]
     Active Substance: CABOZANTINIB S-MALATE
     Indication: Renal cancer
     Dosage: 40 MG, QD
     Route: 048
     Dates: end: 202409
  2. CABOMETYX [Suspect]
     Active Substance: CABOZANTINIB S-MALATE
     Dosage: 20 MG, QD
     Route: 048
  3. OPDIVO [Suspect]
     Active Substance: NIVOLUMAB
     Indication: Renal cancer
     Dates: end: 202409

REACTIONS (21)
  - Myalgia [Unknown]
  - Peripheral swelling [Unknown]
  - Blister [Not Recovered/Not Resolved]
  - Diarrhoea [Recovering/Resolving]
  - Nausea [Recovered/Resolved]
  - Vomiting [Recovered/Resolved]
  - Hepatic enzyme increased [Recovering/Resolving]
  - Erythema [Not Recovered/Not Resolved]
  - Oral pain [Recovering/Resolving]
  - Blood pressure increased [Recovering/Resolving]
  - Decreased appetite [Recovering/Resolving]
  - Weight decreased [Recovering/Resolving]
  - Dry mouth [Unknown]
  - Headache [Unknown]
  - Pain in extremity [Unknown]
  - Thyroid hormones increased [Recovering/Resolving]
  - Paraesthesia [Recovering/Resolving]
  - Sinusitis [Recovering/Resolving]
  - Skin wrinkling [Recovering/Resolving]
  - Pain in jaw [Recovering/Resolving]
  - Skin exfoliation [Not Recovered/Not Resolved]
